FAERS Safety Report 8302670-4 (Version None)
Quarter: 2012Q2

REPORT INFORMATION
  Report Type: 
  Country: None (occurrence: None)
  Receive Date: 20120420
  Receipt Date: 20120416
  Transmission Date: 20120825
  Serious: Yes (Death, Hospitalization)
  Sender: FDA-Public Use
  Company Number: PHHO2010US11433

PATIENT
  Sex: Male

DRUGS (32)
  1. ASPIRIN [Concomitant]
     Dosage: UNK
     Dates: start: 20110806
  2. LIPITOR [Concomitant]
  3. AMLODIPINE [Concomitant]
  4. THYROID TAB [Concomitant]
     Dosage: UNK
     Dates: start: 20110806
  5. HYDROXYZINE [Concomitant]
     Dosage: UNK
     Dates: start: 20110404
  6. SPIRIVA [Concomitant]
     Dosage: UNK
     Dates: start: 20110804
  7. PREVACID [Concomitant]
     Dosage: UNK
     Dates: start: 20110804
  8. DOCUSATE [Concomitant]
     Dosage: UNK
     Dates: start: 20110806
  9. METOPROLOL TARTRATE [Concomitant]
     Dosage: UNK
     Dates: start: 20111022
  10. FERROUS SULFATE TAB [Concomitant]
     Dosage: UNK
     Dates: start: 20111019
  11. AMMONIUM LACTATE [Concomitant]
     Dosage: UNK
     Dates: start: 20070223
  12. MELATONIN [Concomitant]
  13. COUMADIN [Concomitant]
     Dosage: UNK
     Dates: start: 20111012
  14. VITAMIN D [Concomitant]
     Dosage: UNK
     Dates: start: 20111019
  15. PREDNISONE TAB [Suspect]
     Dosage: UNK
     Route: 048
     Dates: start: 20100323
  16. NEORAL [Suspect]
     Indication: RENAL TRANSPLANT
     Dosage: 300 MG, QD
     Route: 048
     Dates: start: 20100326
  17. NIZORAL [Concomitant]
     Dosage: UNK
     Dates: start: 20070223
  18. INSULIN [Concomitant]
     Dosage: UNK
     Dates: start: 20110803
  19. ESOMEPRAZOLE MAGNESIUM [Concomitant]
  20. OXYGEN [Concomitant]
     Dosage: UNK
     Dates: start: 20020101
  21. FISH OIL [Concomitant]
     Dosage: UNK
     Dates: start: 20111019
  22. ALPRAZOLAM [Concomitant]
     Dosage: UNK
     Dates: start: 20120203
  23. PHENERGAN HCL [Concomitant]
  24. ENALAPRIL MALEATE [Concomitant]
  25. FUROSEMIDE [Concomitant]
     Dosage: UNK
     Dates: start: 20111019
  26. ADVAIR DISKUS 100/50 [Concomitant]
     Dosage: UNK
     Dates: start: 20110806
  27. MYCOPHENOLATE MOFETIL (CELLCEPT) [Suspect]
     Indication: RENAL TRANSPLANT
     Dosage: UNK
     Route: 048
     Dates: start: 20100326
  28. PRAMOSONE [Concomitant]
     Dosage: UNK
     Dates: start: 20090811
  29. DIFLUCAN [Concomitant]
  30. TRICOR [Concomitant]
  31. ZOFRAN [Concomitant]
     Dosage: UNK
     Dates: start: 20110806
  32. CARVEDILOL [Concomitant]
     Dosage: UNK
     Dates: start: 20110806

REACTIONS (4)
  - ACUTE RESPIRATORY DISTRESS SYNDROME [None]
  - CELLULITIS [None]
  - BLOOD CREATININE INCREASED [None]
  - ACUTE RESPIRATORY FAILURE [None]
